FAERS Safety Report 8815675 (Version 1)
Quarter: 2012Q4

REPORT INFORMATION
  Report Type: 
  Country: ES (occurrence: ES)
  Receive Date: 20120928
  Receipt Date: 20120928
  Transmission Date: 20130627
  Serious: Yes (Hospitalization, Other)
  Sender: FDA-Public Use
  Company Number: ES-ROXANE LABORATORIES, INC.-2012-RO-01911RO

PATIENT
  Age: 3 Year
  Sex: Male

DRUGS (4)
  1. PREDNISONE [Suspect]
     Indication: NEPHROTIC SYNDROME
  2. ANGIOTENSIN CONVERTING ENZYME [Suspect]
     Indication: NEPHROTIC SYNDROME
  3. ASPIRIN [Suspect]
     Indication: NEPHROTIC SYNDROME
     Dosage: 100 mg
  4. CICLOSPORIN [Suspect]
     Indication: NEPHROTIC SYNDROME

REACTIONS (8)
  - Peritonitis [Recovered/Resolved]
  - Generalised oedema [Recovered/Resolved]
  - Hypotension [Recovered/Resolved]
  - Drug ineffective [Recovered/Resolved]
  - Upper respiratory tract infection [Recovered/Resolved]
  - Nephrotic syndrome [None]
  - Disease recurrence [None]
  - Focal segmental glomerulosclerosis [None]
